FAERS Safety Report 6579639-3 (Version None)
Quarter: 2010Q1

REPORT INFORMATION
  Report Type: 
  Country: None (occurrence: None)
  Receive Date: 20100212
  Receipt Date: 20100209
  Transmission Date: 20100710
  Serious: Yes (Other)
  Sender: FDA-Public Use
  Company Number: US-ROXANE LABORATORIES, INC.-2010-RO-00142RO

PATIENT
  Age: 27 Year
  Sex: Female

DRUGS (3)
  1. NAPROXEN [Suspect]
     Indication: MENSTRUAL DISCOMFORT
  2. IBUPROFEN [Suspect]
     Indication: MENSTRUAL DISCOMFORT
  3. VITAMIN TAB [Suspect]
     Indication: PREGNANCY

REACTIONS (2)
  - DRUG ERUPTION [None]
  - POST INFLAMMATORY PIGMENTATION CHANGE [None]
